FAERS Safety Report 6254984-X (Version None)
Quarter: 2009Q3

REPORT INFORMATION
  Report Type: 
  Country: None (occurrence: None)
  Receive Date: 20090702
  Receipt Date: 20090629
  Transmission Date: 20100115
  Serious: Yes (Other)
  Sender: FDA-Public Use
  Company Number: US-MERCK-0906USA05634

PATIENT
  Sex: Male

DRUGS (1)
  1. ZETIA [Suspect]
     Indication: BLOOD CHOLESTEROL
     Route: 048

REACTIONS (2)
  - DEAFNESS NEUROSENSORY [None]
  - DEAFNESS UNILATERAL [None]
